FAERS Safety Report 6652797-8 (Version None)
Quarter: 2010Q1

REPORT INFORMATION
  Report Type: 
  Country: None (occurrence: None)
  Receive Date: 20100325
  Receipt Date: 20100325
  Transmission Date: 20100710
  Serious: Yes (Death)
  Sender: FDA-Public Use
  Company Number: None

PATIENT
  Sex: Female
  Weight: 86.1834 kg

DRUGS (2)
  1. CYCLOPHOSPHAMIDE [Suspect]
     Indication: BREAST CANCER METASTATIC
     Dosage: 1200 MG EVERY 3 WEEKS IV DRIP
     Route: 041
     Dates: start: 20100208, end: 20100301
  2. DOXORUBICIN HCL [Suspect]
     Dosage: 120 MG EVERY 3 WEEKS IV BOLUS
     Route: 040
     Dates: start: 20100208, end: 20100301

REACTIONS (13)
  - ABDOMINAL PAIN [None]
  - ASTHENIA [None]
  - CHOLECYSTITIS ACUTE [None]
  - DECREASED APPETITE [None]
  - DISEASE PROGRESSION [None]
  - DRUG TOXICITY [None]
  - GALLBLADDER DISORDER [None]
  - HYPERKALAEMIA [None]
  - HYPONATRAEMIA [None]
  - LIVER FUNCTION TEST ABNORMAL [None]
  - NAUSEA [None]
  - PANCYTOPENIA [None]
  - RENAL FAILURE ACUTE [None]
